FAERS Safety Report 9863435 (Version 1)
Quarter: 2014Q1

REPORT INFORMATION
  Report Type: Spontaneous
  Country: US (occurrence: US)
  Receive Date: 20140203
  Receipt Date: 20140203
  Transmission Date: 20141002
  Serious: No
  Sender: FDA-Public Use
  Company Number: US-PFIZER INC-2014030989

PATIENT
  Age: 54 Year
  Sex: Male
  Weight: 68.03 kg

DRUGS (3)
  1. SOLU-MEDROL [Suspect]
     Indication: AUTOIMMUNE DISORDER
     Dosage: 1 G, DAILY
     Dates: start: 20140128, end: 20140128
  2. SOLU-MEDROL [Suspect]
     Indication: NERVOUS SYSTEM DISORDER
  3. SYNTHROID [Concomitant]
     Indication: HYPOTHYROIDISM
     Dosage: 50 UG, 1X/DAY

REACTIONS (1)
  - Heart rate increased [Recovered/Resolved]
